FAERS Safety Report 11075793 (Version 2)
Quarter: 2015Q2

REPORT INFORMATION
  Report Type: Spontaneous
  Country: DK (occurrence: DK)
  Receive Date: 20150429
  Receipt Date: 20150505
  Transmission Date: 20150821
  Serious: Yes (Other)
  Sender: FDA-Public Use
  Company Number: DK-TEVA-558799ISR

PATIENT
  Age: 49 Year
  Sex: Female

DRUGS (2)
  1. TOLFENAMIC ACID [Suspect]
     Active Substance: TOLFENAMIC ACID
     Route: 065
  2. TIZANIDINE (TIZANIDINE) [Suspect]
     Active Substance: TIZANIDINE
     Route: 065

REACTIONS (1)
  - Linear IgA disease [Recovered/Resolved]
